FAERS Safety Report 13292735 (Version 1)
Quarter: 2017Q1

REPORT INFORMATION
  Report Type: Report from Study
  Country: IQ (occurrence: IQ)
  Receive Date: 20170303
  Receipt Date: 20170303
  Transmission Date: 20170428
  Serious: Yes (Death)
  Sender: FDA-Public Use
  Company Number: PHHY2015IQ098976

PATIENT
  Age: 57 Year
  Sex: Male

DRUGS (3)
  1. GLIVEC [Suspect]
     Active Substance: IMATINIB MESYLATE
     Indication: CHRONIC MYELOID LEUKAEMIA
     Dosage: 400 MG, QD
     Route: 048
     Dates: start: 201010
  2. ZESTRIL [Concomitant]
     Active Substance: LISINOPRIL
     Dosage: 1 DF, QD (20 MG TABLET)
     Route: 048
  3. ZESTRIL [Concomitant]
     Active Substance: LISINOPRIL
     Indication: HYPERTENSION
     Dosage: 1 DF, QD (10 MG TABLET)
     Route: 048
     Dates: start: 2008

REACTIONS (7)
  - Cerebral haemorrhage [Fatal]
  - Cerebrovascular accident [Fatal]
  - Choking sensation [Not Recovered/Not Resolved]
  - Influenza [Recovered/Resolved]
  - Nervousness [Unknown]
  - Oropharyngeal pain [Unknown]
  - Hypertension [Recovered/Resolved]

NARRATIVE: CASE EVENT DATE: 20151225
